FAERS Safety Report 5964416-4 (Version None)
Quarter: 2008Q4

REPORT INFORMATION
  Report Type: 
  Country: None (occurrence: None)
  Receive Date: 20081124
  Receipt Date: 20081117
  Transmission Date: 20090506
  Serious: Yes (Other)
  Sender: FDA-Public Use
  Company Number: US-PFIZER INC-2008097647

PATIENT
  Sex: Male

DRUGS (11)
  1. CHANTIX [Suspect]
     Indication: SMOKING CESSATION THERAPY
     Dates: start: 20070101, end: 20070101
  2. TRICOR [Concomitant]
  3. NIACIN [Concomitant]
  4. ZETIA [Concomitant]
  5. CENTRUM [Concomitant]
  6. ACETYLSALICYLIC ACID SRT [Concomitant]
  7. FISH OIL [Concomitant]
  8. CALCIUM [Concomitant]
  9. FOLIC ACID [Concomitant]
  10. CRESTOR [Concomitant]
  11. VITAMINS [Concomitant]

REACTIONS (12)
  - ABNORMAL BEHAVIOUR [None]
  - ABNORMAL DREAMS [None]
  - AGITATION [None]
  - ANGER [None]
  - CONSTIPATION [None]
  - DEPRESSION [None]
  - FLATULENCE [None]
  - MACULAR DEGENERATION [None]
  - MEMORY IMPAIRMENT [None]
  - NAUSEA [None]
  - SUSPICIOUSNESS [None]
  - VOMITING [None]
